FAERS Safety Report 5740896-4 (Version None)
Quarter: 2008Q2

REPORT INFORMATION
  Report Type: 
  Country: None (occurrence: None)
  Receive Date: 20080516
  Receipt Date: 20080421
  Transmission Date: 20081010
  Serious: No
  Sender: FDA-Public Use
  Company Number: US-BOEHRINGER INGELHEIM GMBH, GERMANY-2008-BP-06265BP

PATIENT
  Age: 25 Year
  Sex: Female

DRUGS (2)
  1. CATAPRES-TTS-1 [Suspect]
     Indication: WITHDRAWAL SYNDROME
     Route: 062
     Dates: start: 20080306
  2. CATAPRES-TTS-1 [Suspect]
     Route: 062
     Dates: start: 20080404, end: 20080420

REACTIONS (2)
  - FATIGUE [None]
  - SOMNOLENCE [None]
